FAERS Safety Report 19458180 (Version 2)
Quarter: 2021Q3

REPORT INFORMATION
  Report Type: Spontaneous
  Country: RS (occurrence: RS)
  Receive Date: 20210624
  Receipt Date: 20210720
  Transmission Date: 20211014
  Serious: Yes (Other)
  Sender: FDA-Public Use
  Company Number: RS-ROCHE-2856668

PATIENT
  Age: 21 Year
  Sex: Female

DRUGS (3)
  1. TOCILIZUMAB. [Suspect]
     Active Substance: TOCILIZUMAB
     Dosage: LAST DOSE OF TOCILIZUMAB ADMINISTERED ON 17/JUN/2020
     Route: 042
     Dates: start: 20200309, end: 20200622
  2. TOCILIZUMAB. [Suspect]
     Active Substance: TOCILIZUMAB
     Indication: JUVENILE IDIOPATHIC ARTHRITIS
     Route: 042
     Dates: start: 20191003
  3. PRONISON [Concomitant]
     Active Substance: PREDNISONE

REACTIONS (1)
  - Vascular neoplasm [Unknown]

NARRATIVE: CASE EVENT DATE: 20191114
